FAERS Safety Report 7963601-X (Version None)
Quarter: 2011Q4

REPORT INFORMATION
  Report Type: 
  Country: None (occurrence: None)
  Receive Date: 20111208
  Receipt Date: 20111125
  Transmission Date: 20120403
  Serious: Yes (Other)
  Sender: FDA-Public Use
  Company Number: US-BAYER-2011-033822

PATIENT
  Age: 41 Year
  Sex: Female
  Weight: 54 kg

DRUGS (9)
  1. IBUPROFEN [Concomitant]
  2. OXYCONTIN [Concomitant]
  3. CALCIUM [Concomitant]
     Dosage: UNK
     Dates: start: 20020101
  4. YASMIN [Suspect]
     Indication: ACNE
     Dosage: UNK
     Dates: start: 20030501, end: 20051027
  5. GLUCOSAMINE [Concomitant]
     Dosage: 1500 G, BID
     Dates: start: 20010101
  6. PAXIL [Concomitant]
  7. OXYCODONE HCL [Concomitant]
     Indication: PAIN
     Dosage: 10 MG, UNK
     Dates: start: 20050926, end: 20051001
  8. OXYCODONE HCL [Concomitant]
     Indication: PAIN
     Dosage: 5 MG, UNK
     Dates: start: 20050926, end: 20051001
  9. IRON [Concomitant]

REACTIONS (5)
  - DEEP VEIN THROMBOSIS [None]
  - PAIN IN EXTREMITY [None]
  - GENERAL PHYSICAL HEALTH DETERIORATION [None]
  - INJURY [None]
  - EMOTIONAL DISTRESS [None]
